FAERS Safety Report 13577992 (Version 1)
Quarter: 2017Q2

REPORT INFORMATION
  Report Type: Spontaneous
  Country: US (occurrence: US)
  Receive Date: 20170524
  Receipt Date: 20170524
  Transmission Date: 20170830
  Serious: Yes (Hospitalization, Other)
  Sender: FDA-Public Use
  Company Number: US-LUNDBECK-DKLU2031408

PATIENT
  Age: 79 Year
  Sex: Male

DRUGS (3)
  1. NORTHERA [Suspect]
     Active Substance: DROXIDOPA
     Route: 065
  2. NORTHERA [Suspect]
     Active Substance: DROXIDOPA
     Indication: PARKINSON^S DISEASE
     Route: 065
  3. NORTHERA [Suspect]
     Active Substance: DROXIDOPA
     Route: 065
     Dates: start: 20170406

REACTIONS (12)
  - Confusional state [Unknown]
  - Fall [Unknown]
  - Anger [Unknown]
  - Asthenia [Unknown]
  - Clostridium difficile infection [Unknown]
  - Delusional perception [Unknown]
  - Tremor [Unknown]
  - Dehydration [Unknown]
  - Hallucination [Recovering/Resolving]
  - Aggression [Recovered/Resolved]
  - Blood pressure decreased [Unknown]
  - Staring [Unknown]

NARRATIVE: CASE EVENT DATE: 20170311
